FAERS Safety Report 9910129 (Version 1)
Quarter: 2014Q1

REPORT INFORMATION
  Report Type: Spontaneous
  Country: US (occurrence: None)
  Receive Date: 20140212
  Receipt Date: 20140212
  Transmission Date: 20141002
  Serious: Yes (Hospitalization)
  Sender: FDA-Public Use
  Company Number: 001663297A

PATIENT
  Sex: 0

DRUGS (2)
  1. X-OUT WASH IN TREATMENT [Suspect]
     Indication: ACNE
     Dosage: ONCE DAILY DERMAL
     Dates: start: 20131214, end: 20131216
  2. X-OUT SPOT CORRECTOR [Suspect]
     Indication: ACNE
     Dosage: ONCE DAILY DERMAL
     Dates: start: 20131214, end: 20131216

REACTIONS (3)
  - Application site swelling [None]
  - Dyspnoea [None]
  - Application site discolouration [None]
